FAERS Safety Report 8110452-1 (Version None)
Quarter: 2012Q1

REPORT INFORMATION
  Report Type: 
  Country: None (occurrence: None)
  Receive Date: 20120202
  Receipt Date: 20120123
  Transmission Date: 20120608
  Serious: Yes (Disabling)
  Sender: FDA-Public Use
  Company Number: JP-ALLERGAN-1201531US

PATIENT
  Age: 65 Year
  Sex: Female

DRUGS (3)
  1. CARTEOLOL HYDROCHLORIDE [Concomitant]
     Indication: PRODUCT USED FOR UNKNOWN INDICATION
     Dosage: UNK
  2. AZOPT [Concomitant]
     Indication: PRODUCT USED FOR UNKNOWN INDICATION
     Dosage: UNK
  3. LUMIGAN [Suspect]
     Indication: GLAUCOMA
     Dosage: 1 GTT, NIGHT TIME
     Route: 047
     Dates: start: 20100308, end: 20110703

REACTIONS (3)
  - VISUAL FIELD DEFECT [None]
  - PUNCTATE KERATITIS [None]
  - CONJUNCTIVAL HYPERAEMIA [None]
